FAERS Safety Report 4955118-1 (Version None)
Quarter: 2006Q1

REPORT INFORMATION
  Report Type: 
  Country: None (occurrence: None)
  Receive Date: 20060322
  Receipt Date: 20060310
  Transmission Date: 20060701
  Serious: Yes (Other)
  Sender: FDA-Public Use
  Company Number: US200602003754

PATIENT
  Age: 79 Year
  Sex: Male
  Weight: 77.1 kg

DRUGS (4)
  1. ALIMTA [Suspect]
     Indication: NON-SMALL CELL LUNG CANCER
     Dosage: 1000 MG, INTRAVENOUS
     Route: 042
     Dates: start: 20060208
  2. VITAMIN B12 [Concomitant]
  3. FOLIC ACID [Concomitant]
  4. DEXAMETHASONE TAB [Concomitant]

REACTIONS (3)
  - CONFUSIONAL STATE [None]
  - FATIGUE [None]
  - SYNCOPE [None]
